FAERS Safety Report 14541027 (Version 3)
Quarter: 2018Q1

REPORT INFORMATION
  Report Type: Spontaneous
  Country: US (occurrence: US)
  Receive Date: 20180216
  Receipt Date: 20180313
  Transmission Date: 20180509
  Serious: No
  Sender: FDA-Public Use
  Company Number: US-GLAXOSMITHKLINE-US2018025113

PATIENT
  Sex: Female

DRUGS (1)
  1. ARNUITY ELLIPTA [Suspect]
     Active Substance: FLUTICASONE FUROATE
     Indication: PRODUCT USED FOR UNKNOWN INDICATION
     Dosage: UNK UNK, U
     Route: 055
     Dates: start: 20171116

REACTIONS (6)
  - Underdose [Unknown]
  - Mood altered [Not Recovered/Not Resolved]
  - Inappropriate schedule of drug administration [Unknown]
  - Tooth hypoplasia [Not Recovered/Not Resolved]
  - Drug administered to patient of inappropriate age [Unknown]
  - Fatigue [Not Recovered/Not Resolved]
